FAERS Safety Report 8827348 (Version 2)
Quarter: 2012Q4

REPORT INFORMATION
  Report Type: 
  Country: JP (occurrence: JP)
  Receive Date: 20121005
  Receipt Date: 20121221
  Transmission Date: 20130627
  Serious: Yes (Other)
  Sender: FDA-Public Use
  Company Number: JP-ASTRAZENECA-2012SE75183

PATIENT
  Age: 27 Year
  Sex: Male

DRUGS (4)
  1. PROPOFOL [Suspect]
     Indication: MAINTENANCE OF ANAESTHESIA
     Route: 042
  2. DORMICUM [Suspect]
     Indication: INDUCTION OF ANAESTHESIA
     Route: 065
  3. FENTANYL [Concomitant]
     Indication: INDUCTION AND MAINTENANCE OF ANAESTHESIA
     Route: 065
  4. ROCURONIUM BROMIDE [Concomitant]
     Route: 065

REACTIONS (1)
  - Priapism [Unknown]
